FAERS Safety Report 7377979-1 (Version None)
Quarter: 2011Q1

REPORT INFORMATION
  Report Type: 
  Country: None (occurrence: None)
  Receive Date: 20110328
  Receipt Date: 20110321
  Transmission Date: 20110831
  Serious: Yes (Other)
  Sender: FDA-Public Use
  Company Number: CN-ROCHE-759458

PATIENT

DRUGS (3)
  1. OXALIPLATIN [Suspect]
     Dosage: ON DAY 1
     Route: 065
  2. OXALIPLATIN [Suspect]
     Indication: RECTAL CANCER
     Route: 065
  3. CAPECITABINE [Suspect]
     Indication: RECTAL CANCER
     Route: 048

REACTIONS (2)
  - VESICAL FISTULA [None]
  - BLOOD DISORDER [None]
